FAERS Safety Report 8938084 (Version 1)
Quarter: 2012Q4

REPORT INFORMATION
  Report Type: Spontaneous
  Country: US (occurrence: None)
  Receive Date: 20121128
  Receipt Date: 20121128
  Transmission Date: 20130627
  Serious: Yes (Life-Threatening, Hospitalization)
  Sender: FDA-Public Use
  Company Number: None

PATIENT
  Age: 65 Year
  Sex: Male

DRUGS (1)
  1. TESTOSTERONE [Suspect]
     Dates: start: 20120809, end: 20121030

REACTIONS (12)
  - Pain [None]
  - Crying [None]
  - Tremor [None]
  - Depressed level of consciousness [None]
  - Incoherent [None]
  - Abasia [None]
  - Coma [None]
  - Encephalitis [None]
  - Brain stem syndrome [None]
  - Pain in extremity [None]
  - Drug dose omission [None]
  - Suspected transmission of an infectious agent via product [None]
